FAERS Safety Report 10210278 (Version 1)
Quarter: 2014Q2

REPORT INFORMATION
  Report Type: Spontaneous
  Country: CL (occurrence: CL)
  Receive Date: 20140602
  Receipt Date: 20140602
  Transmission Date: 20141212
  Serious: Yes (Hospitalization)
  Sender: FDA-Public Use
  Company Number: CL-PFIZER INC-2014147714

PATIENT
  Age: 68 Year
  Sex: Male

DRUGS (3)
  1. XALATAN [Suspect]
     Indication: OCULAR HYPERTENSION
     Dosage: 1 GTT IN EACH EYE, 1X/DAY
     Route: 047
     Dates: start: 2007
  2. ENALAPRIL [Concomitant]
  3. METFORMIN [Concomitant]

REACTIONS (1)
  - Renal disorder [Recovered/Resolved]
